FAERS Safety Report 18769571 (Version 2)
Quarter: 2022Q2

REPORT INFORMATION
  Report Type: Spontaneous
  Country: US (occurrence: US)
  Receive Date: 20210121
  Receipt Date: 20220411
  Transmission Date: 20220721
  Serious: Yes (Other)
  Sender: FDA-Public Use
  Company Number: US-GLAXOSMITHKLINE-US2021GSK014113

PATIENT
  Sex: Male

DRUGS (7)
  1. RANITIDINE [Suspect]
     Active Substance: RANITIDINE
     Indication: Dyspepsia
     Dosage: UNK, 2 TO 3 TIMES PER DAY
     Route: 065
     Dates: start: 199001, end: 201910
  2. RANITIDINE [Suspect]
     Active Substance: RANITIDINE
     Indication: Dyspepsia
     Dosage: UNK, 2 TO 3 TIMES PER DAY
     Route: 065
     Dates: start: 199001, end: 201910
  3. ZANTAC [Suspect]
     Active Substance: RANITIDINE HYDROCHLORIDE
     Indication: Dyspepsia
     Dosage: UNK, 2 TO 3 TIMES PER DAY
     Route: 065
     Dates: start: 199001, end: 201910
  4. ZANTAC [Suspect]
     Active Substance: RANITIDINE HYDROCHLORIDE
     Indication: Dyspepsia
     Dosage: UNK, 2 TO 3 TIMES PER
     Route: 065
     Dates: start: 199001, end: 201910
  5. ZANTAC [Suspect]
     Active Substance: RANITIDINE HYDROCHLORIDE
     Indication: Dyspepsia
     Dosage: UNK, 2 TO 3 TIMES PER
     Route: 065
     Dates: start: 199001, end: 201910
  6. RANITIDINE [Suspect]
     Active Substance: RANITIDINE
     Indication: Dyspepsia
     Dosage: UNK, 2 TO 3 TIMES PER DAY
     Route: 065
     Dates: start: 199001, end: 201910
  7. RANITIDINE [Suspect]
     Active Substance: RANITIDINE
     Indication: Dyspepsia
     Dosage: UNK, 2 TO 3 TIMES PER DAY
     Route: 065
     Dates: start: 199001, end: 201910

REACTIONS (1)
  - Gastric cancer [Unknown]
